FAERS Safety Report 6073935-4 (Version None)
Quarter: 2009Q1

REPORT INFORMATION
  Report Type: 
  Country: None (occurrence: None)
  Receive Date: 20090211
  Receipt Date: 20090202
  Transmission Date: 20090719
  Serious: Yes (Other)
  Sender: FDA-Public Use
  Company Number: PHHY2009DE03592

PATIENT
  Sex: Female

DRUGS (3)
  1. ZOMETA [Suspect]
     Indication: BREAST CANCER METASTATIC
  2. AVASTIN [Interacting]
     Indication: BREAST CANCER METASTATIC
  3. PACLITAXEL [Concomitant]

REACTIONS (2)
  - DRUG INTERACTION [None]
  - OSTEONECROSIS [None]
